FAERS Safety Report 8761461 (Version 1)
Quarter: 2012Q4

REPORT INFORMATION
  Report Type: 
  Country: US (occurrence: US)
  Receive Date: 20120830
  Receipt Date: 20120830
  Transmission Date: 20130627
  Serious: No
  Sender: FDA-Public Use
  Company Number: US-BIOGENIDEC-2012BI033705

PATIENT
  Sex: Female

DRUGS (2)
  1. TYSABRI [Suspect]
     Indication: MULTIPLE SCLEROSIS
     Route: 042
     Dates: start: 20101004
  2. LISINOPRIL [Concomitant]
     Indication: HYPERTENSION
     Dates: end: 2012

REACTIONS (2)
  - Salivary gland disorder [Recovered/Resolved]
  - Central venous catheterisation [Unknown]
